FAERS Safety Report 4883668-5 (Version None)
Quarter: 2006Q1

REPORT INFORMATION
  Report Type: 
  Country: None (occurrence: None)
  Receive Date: 20060118
  Receipt Date: 20060110
  Transmission Date: 20060701
  Serious: Yes (Other)
  Sender: FDA-Public Use
  Company Number: JP-SANOFI-SYNTHELABO-A01200600153

PATIENT
  Age: 71 Year
  Sex: Male

DRUGS (4)
  1. MYSLEE [Suspect]
     Indication: DRUG USE FOR UNKNOWN INDICATION
     Dosage: 10 MG
     Route: 048
     Dates: start: 20050712, end: 20050712
  2. VOLTAREN [Concomitant]
     Indication: DRUG USE FOR UNKNOWN INDICATION
     Dosage: 50 MG
     Route: 054
     Dates: start: 20050712, end: 20050712
  3. POLARAMINE [Concomitant]
     Indication: DRUG USE FOR UNKNOWN INDICATION
     Dosage: 2 G
     Route: 048
     Dates: start: 20050706, end: 20050712
  4. CRAVIT [Concomitant]
     Indication: DRUG USE FOR UNKNOWN INDICATION
     Dosage: 100 MG
     Route: 048
     Dates: start: 20050707, end: 20050710

REACTIONS (1)
  - DELIRIUM [None]
